FAERS Safety Report 8200907-3 (Version None)
Quarter: 2012Q1

REPORT INFORMATION
  Report Type: 
  Country: None (occurrence: None)
  Receive Date: 20120312
  Receipt Date: 20110628
  Transmission Date: 20120608
  Serious: No
  Sender: FDA-Public Use
  Company Number: US-ABBOTT-11P-163-0835269-00

PATIENT
  Sex: Female
  Weight: 49.94 kg

DRUGS (2)
  1. IRON [Concomitant]
     Indication: MINERAL SUPPLEMENTATION
     Route: 048
  2. LUPRON DEPOT [Suspect]
     Indication: UTERINE LEIOMYOMA
     Route: 030
     Dates: start: 20110616

REACTIONS (2)
  - ABDOMINAL PAIN [None]
  - METRORRHAGIA [None]
